FAERS Safety Report 18290689 (Version 2)
Quarter: 2020Q4

REPORT INFORMATION
  Report Type: Spontaneous
  Country: US (occurrence: US)
  Receive Date: 20200922
  Receipt Date: 20201106
  Transmission Date: 20210113
  Serious: No
  Sender: FDA-Public Use
  Company Number: US-ASTRAZENECA-2020SF19069

PATIENT
  Sex: Female
  Weight: 72.6 kg

DRUGS (1)
  1. BYDUREON BCISE [Suspect]
     Active Substance: EXENATIDE
     Indication: DIABETES MELLITUS
     Route: 058
     Dates: start: 202008

REACTIONS (4)
  - Product use issue [Unknown]
  - Wrong technique in device usage process [Unknown]
  - Injection site pain [Unknown]
  - Device malfunction [Unknown]
